FAERS Safety Report 7432113-4 (Version None)
Quarter: 2011Q2

REPORT INFORMATION
  Report Type: 
  Country: None (occurrence: None)
  Receive Date: 20110422
  Receipt Date: 20110405
  Transmission Date: 20111010
  Serious: No
  Sender: FDA-Public Use
  Company Number: US-B.I. PHARMACEUTICALS,INC./RIDGEFIELD-2011-BP-10072BP

PATIENT
  Sex: Female

DRUGS (6)
  1. LOSARTAN POTASSIUM [Concomitant]
     Indication: HYPERTENSION
     Dosage: 100 MG
     Route: 048
  2. CALCIUM [Concomitant]
     Indication: OSTEOPENIA
     Route: 048
  3. ACTONEL [Concomitant]
     Indication: OSTEOPENIA
     Route: 048
  4. PRADAXA [Suspect]
     Indication: ATRIAL FIBRILLATION
     Dosage: 300 MG
     Route: 048
     Dates: start: 20110330
  5. HYDROCHLOROTHIAZIDE [Concomitant]
     Indication: HYPERTENSION
     Dosage: 12.5 MG
     Route: 048
  6. ACETAMINOPHEN [Concomitant]
     Indication: ARTHRITIS
     Route: 048

REACTIONS (3)
  - DIARRHOEA [None]
  - BACK PAIN [None]
  - POLLAKIURIA [None]
